FAERS Safety Report 8426805-8 (Version None)
Quarter: 2012Q2

REPORT INFORMATION
  Report Type: 
  Country: None (occurrence: None)
  Receive Date: 20120611
  Receipt Date: 20120606
  Transmission Date: 20120825
  Serious: Yes (Hospitalization, Other)
  Sender: FDA-Public Use
  Company Number: PHHY2012DE006559

PATIENT
  Sex: Male
  Weight: 99 kg

DRUGS (18)
  1. HYDROCHLOROTHIAZIDE [Concomitant]
     Indication: HYPERTENSION
     Dosage: 25 MG/DAY
     Route: 048
     Dates: start: 20030321
  2. RAMIPRIL [Concomitant]
     Indication: HYPERTENSION
     Dosage: 10 MG, PER DAY
     Route: 048
     Dates: start: 20100121
  3. BETA BLOCKING AGENTS [Concomitant]
     Dates: start: 20110331
  4. HMG COA REDUCTASE INHIBITORS (STATINS) [Concomitant]
  5. DIOVAN [Suspect]
     Indication: HYPERTENSION
     Dosage: 80 MG, PER DAY
     Route: 048
     Dates: start: 20110829, end: 20110919
  6. DOXEPIN HCL [Concomitant]
     Indication: DEPRESSION
     Dosage: 50 MG, PER DAY
     Route: 048
     Dates: start: 20101103
  7. DOXEPIN HCL [Concomitant]
     Indication: INSOMNIA
  8. BETA BLOCKING AGENTS [Concomitant]
     Dates: end: 20101122
  9. AMLODIPINE [Concomitant]
     Indication: HYPERTENSION
     Dosage: 5 MG, PER DAY
     Route: 048
     Dates: start: 20100607
  10. ALDOSTERONE ANTAGONISTS [Concomitant]
     Dates: start: 20110912
  11. ANGIOTENSIN RECEPTOR BLOCKER [Concomitant]
  12. ANTIDEPRESSANTS [Concomitant]
  13. XIPAMIDE [Concomitant]
     Dosage: 10 MG/DAY
     Dates: start: 20100305, end: 20100817
  14. PLATELET AGGREGATION INHIBITORS [Concomitant]
  15. CALCIUM CHANNEL BLOCKERS [Concomitant]
  16. DIURETICS [Concomitant]
  17. RASILEZ [Suspect]
     Indication: HYPERTENSION
     Dosage: 100 MG, PER DAY
     Route: 048
     Dates: start: 20081006, end: 20110912
  18. SERTRALINE HYDROCHLORIDE [Concomitant]
     Indication: DEPRESSION
     Dosage: 100 MG, PER DAY
     Route: 048
     Dates: start: 20110713

REACTIONS (5)
  - CONGESTIVE CARDIOMYOPATHY [None]
  - MITRAL VALVE INCOMPETENCE [None]
  - PULMONARY HYPERTENSION [None]
  - ELECTROCARDIOGRAM QT PROLONGED [None]
  - CARDIAC FAILURE [None]
